FAERS Safety Report 14343078 (Version 2)
Quarter: 2018Q3

REPORT INFORMATION
  Report Type: Spontaneous
  Country: ES (occurrence: ES)
  Receive Date: 20180102
  Receipt Date: 20180709
  Transmission Date: 20181010
  Serious: Yes (Other)
  Sender: FDA-Public Use
  Company Number: PHHY2017ES190878

PATIENT
  Age: 81 Year
  Sex: Female

DRUGS (4)
  1. MINOCYCLINE [Suspect]
     Active Substance: MINOCYCLINE\MINOCYCLINE HYDROCHLORIDE
     Indication: STAPHYLOCOCCAL INFECTION
  2. CEFAZOLIN [Concomitant]
     Active Substance: CEFAZOLIN
     Indication: PRODUCT USED FOR UNKNOWN INDICATION
     Dosage: CONTINUED TILL 8 WEEKS
     Route: 042
  3. MINOCYCLINE [Suspect]
     Active Substance: MINOCYCLINE\MINOCYCLINE HYDROCHLORIDE
     Indication: STAPHYLOCOCCAL BACTERAEMIA
     Route: 048
  4. RIFAMPICIN [Suspect]
     Active Substance: RIFAMPIN
     Indication: PRODUCT USED FOR UNKNOWN INDICATION
     Dosage: UNK
     Route: 065

REACTIONS (3)
  - Toxic skin eruption [Unknown]
  - Skin hyperpigmentation [Recovered/Resolved]
  - Hypersensitivity [Unknown]
